FAERS Safety Report 8247334-0 (Version None)
Quarter: 2012Q1

REPORT INFORMATION
  Report Type: 
  Country: None (occurrence: None)
  Receive Date: 20120330
  Receipt Date: 20120322
  Transmission Date: 20120608
  Serious: Yes (Hospitalization)
  Sender: FDA-Public Use
  Company Number: TR-JNJFOC-20120312961

PATIENT
  Age: 8 Year
  Sex: Female

DRUGS (4)
  1. CONCERTA [Suspect]
     Indication: ATTENTION DEFICIT/HYPERACTIVITY DISORDER
     Route: 048
  2. CONCERTA [Suspect]
     Route: 048
  3. CONCERTA [Suspect]
     Route: 048
  4. PHENOBARBITAL [Concomitant]
     Indication: EPILEPSY

REACTIONS (4)
  - GASTRIC ULCER [None]
  - ABDOMINAL PAIN UPPER [None]
  - HAEMOPTYSIS [None]
  - GASTRIC HAEMORRHAGE [None]
